FAERS Safety Report 19969383 (Version 1)
Quarter: 2021Q4

REPORT INFORMATION
  Report Type: Spontaneous
  Country: US (occurrence: US)
  Receive Date: 20211019
  Receipt Date: 20211019
  Transmission Date: 20220303
  Serious: Yes (Other)
  Sender: FDA-Public Use
  Company Number: US-PFIZER INC-202101318509

PATIENT
  Age: 59 Year
  Sex: Female
  Weight: 80.74 kg

DRUGS (2)
  1. LYRICA CR [Suspect]
     Active Substance: PREGABALIN
     Indication: Fibromyalgia
     Dosage: 330 MG, 1X/DAY
     Route: 048
     Dates: start: 202108
  2. LYRICA CR [Suspect]
     Active Substance: PREGABALIN
     Dosage: 165 MG, 2X/DAY

REACTIONS (6)
  - Withdrawal syndrome [Recovering/Resolving]
  - Dizziness [Unknown]
  - Headache [Unknown]
  - Tremor [Unknown]
  - Impaired driving ability [Unknown]
  - Off label use [Unknown]

NARRATIVE: CASE EVENT DATE: 20210801
